FAERS Safety Report 4609956-5 (Version None)
Quarter: 2005Q1

REPORT INFORMATION
  Report Type: 
  Country: None (occurrence: None)
  Receive Date: 20050316
  Receipt Date: 20050215
  Transmission Date: 20050727
  Serious: Yes (Hospitalization, Other)
  Sender: FDA-Public Use
  Company Number: FR-BRISTOL-MYERS SQUIBB COMPANY-12872420

PATIENT
  Age: 55 Year
  Sex: Female

DRUGS (4)
  1. ERBITUX [Suspect]
     Indication: RECTAL CANCER
     Route: 042
     Dates: start: 20050110, end: 20050117
  2. CAMPTO [Suspect]
     Indication: RECTAL CANCER
     Route: 042
     Dates: start: 20040624, end: 20050112
  3. FLUOROURACIL [Suspect]
     Indication: RECTAL CANCER
     Route: 042
     Dates: end: 20050212
  4. ELVORINE [Suspect]
     Indication: COLORECTAL CANCER
     Route: 042
     Dates: end: 20050112

REACTIONS (1)
  - FEMALE GENITAL-DIGESTIVE TRACT FISTULA [None]
